FAERS Safety Report 7642571-8 (Version None)
Quarter: 2011Q3

REPORT INFORMATION
  Report Type: 
  Country: None (occurrence: None)
  Receive Date: 20110728
  Receipt Date: 20110717
  Transmission Date: 20111222
  Serious: Yes (Hospitalization)
  Sender: FDA-Public Use
  Company Number: CA-JNJFOC-20110103133

PATIENT
  Sex: Female
  Weight: 70 kg

DRUGS (6)
  1. REMICADE [Suspect]
     Indication: COLITIS ULCERATIVE
     Route: 042
     Dates: start: 20100720, end: 20101019
  2. SOLU-CORTEF [Concomitant]
     Indication: PREMEDICATION
     Route: 042
  3. REMICADE [Suspect]
     Indication: CROHN'S DISEASE
     Route: 042
     Dates: start: 20100720, end: 20101019
  4. PENTASA [Concomitant]
     Indication: COLITIS ULCERATIVE
     Route: 048
     Dates: start: 20100716
  5. BENADRYL [Concomitant]
     Indication: PREMEDICATION
     Route: 042
  6. PREDNISONE [Concomitant]
     Dosage: TAPERING DOWN
     Route: 048
     Dates: start: 20100516, end: 20100716

REACTIONS (3)
  - MATERNAL EXPOSURE DURING PREGNANCY [None]
  - COLITIS ULCERATIVE [None]
  - PREMATURE DELIVERY [None]
